FAERS Safety Report 13311242 (Version 1)
Quarter: 2017Q1

REPORT INFORMATION
  Report Type: Spontaneous
  Country: US (occurrence: US)
  Receive Date: 20170309
  Receipt Date: 20170309
  Transmission Date: 20170428
  Serious: No
  Sender: FDA-Public Use
  Company Number: US-JNJFOC-20170111583

PATIENT
  Sex: Female

DRUGS (1)
  1. INVEGA [Suspect]
     Active Substance: PALIPERIDONE
     Indication: SCHIZOAFFECTIVE DISORDER
     Route: 048

REACTIONS (4)
  - Aggression [Not Recovered/Not Resolved]
  - Anger [Not Recovered/Not Resolved]
  - Suspiciousness [Not Recovered/Not Resolved]
  - Hostility [Not Recovered/Not Resolved]
